FAERS Safety Report 10026711 (Version 2)
Quarter: 2014Q2

REPORT INFORMATION
  Report Type: Spontaneous
  Country: IT (occurrence: IT)
  Receive Date: 20140321
  Receipt Date: 20140515
  Transmission Date: 20141212
  Serious: Yes (Hospitalization, Other)
  Sender: FDA-Public Use
  Company Number: IT-BRISTOL-MYERS SQUIBB COMPANY-20550307

PATIENT
  Age: 86 Year
  Sex: Female

DRUGS (8)
  1. GLUCOPHAGE [Suspect]
     Indication: DIABETES MELLITUS
     Dosage: 1DF=30X500MG
     Route: 048
  2. TAREG [Interacting]
     Indication: HYPERTENSIVE HEART DISEASE
     Dosage: 1 DF=20X80MG
     Route: 048
  3. SPIRONOLACTONE [Interacting]
     Indication: HYPERTENSIVE HEART DISEASE
     Dosage: 1 DF=16X25;CAPSULE HARD
     Route: 048
  4. LASITONE [Interacting]
     Indication: HYPERTENSIVE HEART DISEASE
     Dosage: 1DF=20 X 25 PLUS 37MG
     Route: 048
  5. COUMADIN [Concomitant]
     Dosage: 30X5 MG
  6. TORVAST [Concomitant]
  7. LANSOX [Concomitant]
  8. BISOPROLOL FUMARATE [Concomitant]

REACTIONS (2)
  - Renal failure acute [Recovered/Resolved]
  - Drug interaction [Unknown]
